FAERS Safety Report 6613840-5 (Version None)
Quarter: 2010Q1

REPORT INFORMATION
  Report Type: 
  Country: None (occurrence: None)
  Receive Date: 20100304
  Receipt Date: 20100301
  Transmission Date: 20100710
  Serious: Yes (Life-Threatening, Hospitalization, Other)
  Sender: FDA-Public Use
  Company Number: GB-GILEAD-2010-0026848

PATIENT
  Sex: Male
  Weight: 70 kg

DRUGS (7)
  1. TRUVADA [Suspect]
     Indication: HIV INFECTION
     Route: 048
     Dates: start: 20091006, end: 20091016
  2. SUSTIVA [Concomitant]
     Indication: HIV INFECTION
     Route: 048
     Dates: start: 20091006
  3. COTRIMOXAZOLE [Concomitant]
     Indication: ANTIFUNGAL PROPHYLAXIS
     Route: 048
     Dates: start: 20090819
  4. DEXAMETHASONE [Concomitant]
     Indication: CENTRAL NERVOUS SYSTEM LESION
     Route: 048
     Dates: start: 20090819
  5. LEVETIRACETAM [Concomitant]
     Indication: CENTRAL NERVOUS SYSTEM LESION
     Route: 048
     Dates: start: 20090819
  6. RIFATER [Concomitant]
     Indication: PULMONARY TUBERCULOSIS
     Route: 048
     Dates: start: 20090819, end: 20091117
  7. PYRIDOXINE [Concomitant]
     Indication: PULMONARY TUBERCULOSIS
     Route: 048
     Dates: start: 20090819

REACTIONS (2)
  - RENAL FAILURE ACUTE [None]
  - TUBULOINTERSTITIAL NEPHRITIS [None]
